FAERS Safety Report 9714584 (Version 1)
Quarter: 2013Q4

REPORT INFORMATION
  Report Type: Spontaneous
  Country: FR (occurrence: FR)
  Receive Date: 20131126
  Receipt Date: 20131126
  Transmission Date: 20140711
  Serious: Yes (Other)
  Sender: FDA-Public Use
  Company Number: FR-ALLERGAN-1318554US

PATIENT
  Sex: Female

DRUGS (3)
  1. ALPHAGAN 0,2% (2MG/ML), COLLYRE EN SOLUTION [Suspect]
     Indication: PRODUCT USED FOR UNKNOWN INDICATION
  2. LUMIGAN [Concomitant]
  3. AZOPT [Concomitant]

REACTIONS (1)
  - Uveitis [Unknown]
